FAERS Safety Report 4949861-8 (Version None)
Quarter: 2006Q1

REPORT INFORMATION
  Report Type: 
  Country: None (occurrence: None)
  Receive Date: 20060321
  Receipt Date: 20051117
  Transmission Date: 20060701
  Serious: Yes (Hospitalization)
  Sender: FDA-Public Use
  Company Number: US-MERCK-0511USA03270

PATIENT
  Age: 74 Year
  Sex: Female
  Weight: 80 kg

DRUGS (17)
  1. VIOXX [Suspect]
     Indication: ARTHRITIS
     Route: 048
     Dates: start: 20000101, end: 20040101
  2. VITAMINS (UNSPECIFIED) [Concomitant]
     Route: 048
  3. ARICEPT [Concomitant]
     Route: 048
  4. LEVOXYL [Concomitant]
     Route: 048
  5. PREVACID [Concomitant]
     Route: 048
  6. LACTOBACILLUS ACIDOPHILUS (AS DRUG) [Concomitant]
     Route: 048
  7. OS-CAL [Concomitant]
     Route: 048
  8. ROBAXIN [Concomitant]
     Route: 048
  9. ALTACE [Concomitant]
     Route: 048
  10. SENOKOT (SENNOSIDES) [Concomitant]
     Route: 048
  11. FOSAMAX [Concomitant]
     Route: 048
  12. METHADONE HYDROCHLORIDE [Concomitant]
     Route: 048
  13. COUMADIN [Concomitant]
     Route: 048
  14. LEXAPRO [Concomitant]
     Route: 048
  15. LORTAB [Concomitant]
     Route: 048
  16. MILK OF MAGNESIA TAB [Concomitant]
     Route: 048
  17. [THERAPY UNSPECIFIED] [Concomitant]
     Route: 048

REACTIONS (2)
  - CEREBROVASCULAR ACCIDENT [None]
  - DEEP VEIN THROMBOSIS [None]
